FAERS Safety Report 23427144 (Version 2)
Quarter: 2024Q1

REPORT INFORMATION
  Report Type: Spontaneous
  Country: US (occurrence: US)
  Receive Date: 20240122
  Receipt Date: 20240208
  Transmission Date: 20240410
  Serious: Yes (Hospitalization, Other)
  Sender: FDA-Public Use
  Company Number: US-HIKMA PHARMACEUTICALS USA INC.-US-H14001-24-00283

PATIENT

DRUGS (9)
  1. DIPRIVAN [Suspect]
     Active Substance: ISOPROPYL ALCOHOL\PROPOFOL
     Indication: Anaesthesia
     Dosage: 846.81MG, CONTINUOUS INFUSION
     Route: 042
     Dates: start: 20221221
  2. PROPOFOL [Suspect]
     Active Substance: PROPOFOL
     Dosage: NOT APPLICABLE (COMPANY^S SUSPECT PRODUCT NOT ADMINISTERED)
  3. DEXAMETHASONE [Concomitant]
     Active Substance: DEXAMETHASONE
     Indication: Anaesthesia
     Dosage: 4 MG
     Route: 065
  4. EPHEDRINE [Concomitant]
     Active Substance: EPHEDRINE
     Indication: Product used for unknown indication
     Dosage: 15 MG
     Route: 065
  5. FENTANYL [Concomitant]
     Active Substance: FENTANYL\FENTANYL CITRATE
     Indication: Anaesthesia
     Dosage: 150 MCG
     Route: 042
  6. LIDOCAINE [Concomitant]
     Active Substance: LIDOCAINE
     Indication: Anaesthesia
     Dosage: UNKNOWN
     Route: 065
  7. MIDAZOLAM [Concomitant]
     Active Substance: MIDAZOLAM
     Indication: Premedication
     Dosage: 2 MG
     Route: 065
  8. ONDANSETRON [Concomitant]
     Active Substance: ONDANSETRON
     Indication: Anaesthesia
     Dosage: 4 MG
     Route: 065
  9. PHENYLEPHRINE [Concomitant]
     Active Substance: PHENYLEPHRINE HYDROCHLORIDE
     Indication: Anaesthesia
     Dosage: UNKNOWN
     Route: 065

REACTIONS (1)
  - Dissociative identity disorder [Recovered/Resolved]

NARRATIVE: CASE EVENT DATE: 20221221
